FAERS Safety Report 7441976-8 (Version None)
Quarter: 2011Q2

REPORT INFORMATION
  Report Type: 
  Country: None (occurrence: None)
  Receive Date: 20110428
  Receipt Date: 20100626
  Transmission Date: 20111010
  Serious: No
  Sender: FDA-Public Use
  Company Number: US-ASTRAZENECA-2010SE30127

PATIENT
  Sex: Male

DRUGS (1)
  1. ZOMIG [Suspect]
     Route: 065

REACTIONS (2)
  - NAUSEA [None]
  - FEELING ABNORMAL [None]
